FAERS Safety Report 24249299 (Version 1)
Quarter: 2024Q3

REPORT INFORMATION
  Report Type: Spontaneous
  Country: BR (occurrence: BR)
  Receive Date: 20240826
  Receipt Date: 20240826
  Transmission Date: 20241016
  Serious: Yes (Other)
  Sender: NOVARTIS
  Company Number: BR-002147023-NVSC2024BR171339

PATIENT
  Sex: Male

DRUGS (1)
  1. TRILEPTAL [Suspect]
     Active Substance: OXCARBAZEPINE
     Indication: Product used for unknown indication
     Dosage: UNK (60 MG/ML ORAL SUSPENSION CONTAINS FLASK AMBER FLASK X 100 ML + 2 DOSING SYRINGE)
     Route: 065

REACTIONS (4)
  - Partial seizures [Recovered/Resolved]
  - Musculoskeletal stiffness [Recovered/Resolved]
  - Product physical consistency issue [Unknown]
  - Tremor [Recovered/Resolved]
